FAERS Safety Report 15207931 (Version 1)
Quarter: 2018Q3

REPORT INFORMATION
  Report Type: Spontaneous
  Country: US (occurrence: US)
  Receive Date: 20180628
  Receipt Date: 20180628
  Transmission Date: 20181010
  Serious: No
  Sender: FDA-Public Use
  Company Number: None

PATIENT
  Age: 14 Year
  Sex: Female

DRUGS (1)
  1. NUCALA [Suspect]
     Active Substance: MEPOLIZUMAB
     Dates: start: 20170831, end: 20180628

REACTIONS (3)
  - Asthma [None]
  - Secretion discharge [None]
  - Pneumonia [None]

NARRATIVE: CASE EVENT DATE: 20180625
